FAERS Safety Report 18020752 (Version 2)
Quarter: 2020Q3

REPORT INFORMATION
  Report Type: Spontaneous
  Country: DE (occurrence: DE)
  Receive Date: 20200714
  Receipt Date: 20200728
  Transmission Date: 20201103
  Serious: Yes (Hospitalization)
  Sender: FDA-Public Use
  Company Number: NVSC2020DE188712

PATIENT
  Sex: Female
  Weight: 64 kg

DRUGS (1)
  1. BEOVU [Suspect]
     Active Substance: BROLUCIZUMAB-DBLL
     Indication: NEOVASCULAR AGE-RELATED MACULAR DEGENERATION
     Dosage: UNK UNK, ONCE/SINGLE
     Route: 031
     Dates: start: 20200615, end: 20200615

REACTIONS (6)
  - Vitritis [Recovering/Resolving]
  - Macular oedema [Recovering/Resolving]
  - Eye disorder [Not Recovered/Not Resolved]
  - Iridocyclitis [Recovering/Resolving]
  - Non-infectious endophthalmitis [Recovering/Resolving]
  - Visual impairment [Recovering/Resolving]

NARRATIVE: CASE EVENT DATE: 20200626
